FAERS Safety Report 20347316 (Version 1)
Quarter: 2022Q1

REPORT INFORMATION
  Report Type: Spontaneous
  Country: US (occurrence: None)
  Receive Date: 20220118
  Receipt Date: 20220118
  Transmission Date: 20220423
  Serious: No
  Sender: FDA-Public Use
  Company Number: None

PATIENT
  Age: 75 Year
  Sex: Female

DRUGS (1)
  1. XELJANZ [Suspect]
     Active Substance: TOFACITINIB CITRATE
     Indication: Rheumatoid arthritis
     Dosage: FREQUENCY : DAILY;?
     Route: 048
     Dates: start: 20161121

REACTIONS (7)
  - Arthralgia [None]
  - Arthralgia [None]
  - Neck pain [None]
  - Arthralgia [None]
  - Arthralgia [None]
  - Contusion [None]
  - Condition aggravated [None]

NARRATIVE: CASE EVENT DATE: 20211101
